FAERS Safety Report 6600659-4 (Version None)
Quarter: 2010Q1

REPORT INFORMATION
  Report Type: 
  Country: None (occurrence: None)
  Receive Date: 20100223
  Receipt Date: 20100223
  Transmission Date: 20100710
  Serious: No
  Sender: FDA-Public Use
  Company Number: None

PATIENT
  Age: 48 Year
  Sex: Female
  Weight: 65.7716 kg

DRUGS (1)
  1. CIPRO [Suspect]
     Indication: KIDNEY INFECTION
     Dosage: 500 MG 2XDAY PO
     Route: 048
     Dates: start: 20090602, end: 20090613

REACTIONS (20)
  - ABASIA [None]
  - ARTHROPATHY [None]
  - ASTHENIA [None]
  - GASTROINTESTINAL DISORDER [None]
  - GOUT [None]
  - HERNIA [None]
  - HYPOAESTHESIA [None]
  - HYPOPHAGIA [None]
  - IMPAIRED WORK ABILITY [None]
  - INFLAMMATION [None]
  - JOINT SWELLING [None]
  - LIGAMENT DISORDER [None]
  - LOCAL SWELLING [None]
  - MIGRAINE [None]
  - MOBILITY DECREASED [None]
  - MUSCLE TWITCHING [None]
  - PAIN [None]
  - RASH [None]
  - TIC [None]
  - WEIGHT DECREASED [None]
